FAERS Safety Report 4862782-4 (Version None)
Quarter: 2005Q4

REPORT INFORMATION
  Report Type: 
  Country: None (occurrence: None)
  Receive Date: 20051219
  Receipt Date: 20051205
  Transmission Date: 20060501
  Serious: Yes (Other)
  Sender: FDA-Public Use
  Company Number: 2005164080

PATIENT
  Sex: Male

DRUGS (2)
  1. BEXTRA [Suspect]
     Indication: ILL-DEFINED DISORDER
     Dates: start: 20040601
  2. VIOXX [Suspect]
     Indication: ILL-DEFINED DISORDER

REACTIONS (2)
  - CARDIAC DISORDER [None]
  - INJURY [None]
